FAERS Safety Report 7990835-0 (Version None)
Quarter: 2011Q4

REPORT INFORMATION
  Report Type: 
  Country: None (occurrence: None)
  Receive Date: 20111219
  Receipt Date: 20111215
  Transmission Date: 20120403
  Serious: Yes (Other)
  Sender: FDA-Public Use
  Company Number: US-BIOMARINP-002191

PATIENT
  Sex: Male

DRUGS (2)
  1. OXYGEN [Concomitant]
  2. KUVAN [Suspect]
     Indication: PHENYLKETONURIA
     Route: 064
     Dates: end: 20110928

REACTIONS (1)
  - NEONATAL RESPIRATORY DISTRESS SYNDROME [None]
